FAERS Safety Report 8879743 (Version 2)
Quarter: 2012Q4

REPORT INFORMATION
  Report Type: Report from Study
  Country: DE (occurrence: DE)
  Receive Date: 20121031
  Receipt Date: 20121109
  Transmission Date: 20130627
  Serious: Yes (Life-Threatening, Hospitalization)
  Sender: FDA-Public Use
  Company Number: DE-TEVA-367410GER

PATIENT
  Age: 59 Year
  Sex: Female
  Weight: 53 kg

DRUGS (3)
  1. MYOCET [Suspect]
     Indication: BREAST CANCER
     Dosage: 32 milligram Day 1, 8, 15
     Route: 042
     Dates: start: 20120723
  2. PACLITAXEL [Suspect]
     Indication: BREAST CANCER
     Dosage: 126 milligram Day 1, 8, 15
     Route: 042
     Dates: start: 20120723
  3. AVASTIN [Suspect]
     Indication: BREAST CANCER
     Dosage: 825 milligram Day 1
     Route: 042
     Dates: start: 20120723

REACTIONS (1)
  - Hypokalaemia [Recovered/Resolved]
